FAERS Safety Report 16204116 (Version 2)
Quarter: 2019Q2

REPORT INFORMATION
  Report Type: Spontaneous
  Country: US (occurrence: US)
  Receive Date: 20190416
  Receipt Date: 20190515
  Transmission Date: 20190711
  Serious: Yes (Hospitalization, Other)
  Sender: FDA-Public Use
  Company Number: US-PFIZER INC-2019157749

PATIENT
  Age: 73 Year
  Sex: Female
  Weight: 56.7 kg

DRUGS (2)
  1. XELJANZ [Suspect]
     Active Substance: TOFACITINIB CITRATE
     Indication: PAIN
  2. XELJANZ [Suspect]
     Active Substance: TOFACITINIB CITRATE
     Indication: RHEUMATOID ARTHRITIS
     Dosage: 5 MG, TWICE A DAY
     Route: 048
     Dates: start: 20190305, end: 20190312

REACTIONS (8)
  - Ear pain [Recovered/Resolved with Sequelae]
  - Salivary gland enlargement [Not Recovered/Not Resolved]
  - Headache [Recovered/Resolved]
  - Dyspnoea [Not Recovered/Not Resolved]
  - Sensation of foreign body [Recovered/Resolved]
  - Chills [Not Recovered/Not Resolved]
  - Influenza like illness [Recovered/Resolved]
  - Chronic obstructive pulmonary disease [Not Recovered/Not Resolved]

NARRATIVE: CASE EVENT DATE: 20190305
